FAERS Safety Report 4589446-9 (Version None)
Quarter: 2005Q1

REPORT INFORMATION
  Report Type: 
  Country: None (occurrence: None)
  Receive Date: 20050216
  Receipt Date: 20050203
  Transmission Date: 20050727
  Serious: Yes (Life-Threatening, Hospitalization, Other)
  Sender: FDA-Public Use
  Company Number: 2005014116

PATIENT
  Age: 53 Year
  Sex: Female
  Weight: 75 kg

DRUGS (5)
  1. RELPAX [Suspect]
     Indication: MIGRAINE
     Dosage: ORAL
     Route: 048
     Dates: start: 20021001
  2. CELEBREX [Suspect]
     Indication: MIGRAINE
     Dates: start: 20040601, end: 20041029
  3. ROFECOXIB [Suspect]
     Indication: MIGRAINE
     Dosage: ORAL
     Route: 048
     Dates: start: 20040601, end: 20041029
  4. NARATRIPTAN HYDROCHLORIDE (NARATRIPTAN HYDROCHLORIDE) [Suspect]
     Indication: ILL-DEFINED DISORDER
     Dosage: ORAL
     Dates: start: 20021001
  5. ATENOLOL [Concomitant]

REACTIONS (3)
  - DIVERTICULITIS [None]
  - DRUG INTERACTION [None]
  - SIGMOIDITIS [None]
